FAERS Safety Report 21279145 (Version 2)
Quarter: 2022Q4

REPORT INFORMATION
  Report Type: Spontaneous
  Country: BR (occurrence: BR)
  Receive Date: 20220901
  Receipt Date: 20221027
  Transmission Date: 20230112
  Serious: Yes (Hospitalization, Other)
  Sender: FDA-Public Use
  Company Number: BR-UCBSA-2022051369

PATIENT
  Age: 53 Year
  Sex: Female

DRUGS (1)
  1. CIMZIA [Suspect]
     Active Substance: CERTOLIZUMAB PEGOL
     Indication: Rheumatoid arthritis
     Dosage: 200 MILLIGRAM, EV 2 WEEKS(QOW)
     Route: 058
     Dates: start: 20191127, end: 20220601

REACTIONS (5)
  - Aortic thrombosis [Unknown]
  - Metastases to bone [Unknown]
  - Spinal fracture [Unknown]
  - Pleural effusion [Unknown]
  - Back pain [Unknown]

NARRATIVE: CASE EVENT DATE: 20220615
